FAERS Safety Report 25575518 (Version 1)
Quarter: 2025Q3

REPORT INFORMATION
  Report Type: Spontaneous
  Country: HK (occurrence: None)
  Receive Date: 20250718
  Receipt Date: 20250718
  Transmission Date: 20251020
  Serious: Yes (Other)
  Sender: ADIENNE PHARMA & BIOTECH
  Company Number: HK-ADIENNEP-2025AD000511

PATIENT
  Sex: Male

DRUGS (7)
  1. THIOTEPA [Suspect]
     Active Substance: THIOTEPA
     Indication: Allogenic stem cell transplantation
  2. MELPHALAN [Suspect]
     Active Substance: MELPHALAN
     Indication: Allogenic stem cell transplantation
  3. FLUDARABINE [Suspect]
     Active Substance: FLUDARABINE PHOSPHATE
     Indication: Allogenic stem cell transplantation
     Dosage: 30 MG/M2/DAY FOR 5 DAYS FROM DAY -7 TO DAY -3
  4. CYCLOPHOSPHAMIDE [Suspect]
     Active Substance: CYCLOPHOSPHAMIDE
     Indication: Allogenic stem cell transplantation
  5. ETOPOSIDE [Suspect]
     Active Substance: ETOPOSIDE
     Indication: Chemotherapy
     Dosage: TWO DOSES OF 5 MG/KG/DAY ON DAY -6 AND DAY -5
  6. CYCLOPHOSPHAMIDE [Suspect]
     Active Substance: CYCLOPHOSPHAMIDE
     Indication: Chemotherapy
  7. ALEMTUZUMAB [Suspect]
     Active Substance: ALEMTUZUMAB
     Route: 058

REACTIONS (6)
  - Engraftment syndrome [Recovered/Resolved]
  - Venoocclusive liver disease [Recovered/Resolved]
  - Acute graft versus host disease in skin [Recovered/Resolved]
  - Acute graft versus host disease in liver [Recovered/Resolved]
  - Acute graft versus host disease in intestine [Recovered/Resolved]
  - Systemic infection [Recovered/Resolved]
